FAERS Safety Report 25441596 (Version 1)
Quarter: 2025Q2

REPORT INFORMATION
  Report Type: Spontaneous
  Country: GB (occurrence: GB)
  Receive Date: 20250616
  Receipt Date: 20250616
  Transmission Date: 20250717
  Serious: Yes (Other)
  Sender: AMGEN
  Company Number: None

PATIENT
  Age: 70 Year
  Sex: Female
  Weight: 72 kg

DRUGS (4)
  1. PROLIA [Suspect]
     Active Substance: DENOSUMAB
     Indication: Adverse drug reaction
     Route: 030
     Dates: start: 20250305, end: 20250306
  2. PROLIA [Suspect]
     Active Substance: DENOSUMAB
     Indication: Breast cancer female
  3. FULVESTRANT [Concomitant]
     Active Substance: FULVESTRANT
     Indication: Breast cancer female
     Dates: start: 20240501
  4. ABEMACICLIB [Concomitant]
     Active Substance: ABEMACICLIB
     Indication: Breast cancer female
     Dates: start: 20240909

REACTIONS (12)
  - Musculoskeletal disorder [Not Recovered/Not Resolved]
  - Osteoarthritis [Unknown]
  - Arthralgia [Recovering/Resolving]
  - Bone metabolism disorder [Unknown]
  - Sleep disorder [Unknown]
  - Gait disturbance [Unknown]
  - Abscess oral [Unknown]
  - Upper respiratory tract infection [Recovered/Resolved]
  - Pain [Unknown]
  - Off label use [Unknown]
  - Incorrect route of product administration [Unknown]
  - Tooth abscess [Unknown]

NARRATIVE: CASE EVENT DATE: 20250301
